FAERS Safety Report 18651234 (Version 1)
Quarter: 2020Q4

REPORT INFORMATION
  Report Type: Spontaneous
  Country: FR (occurrence: FR)
  Receive Date: 20201222
  Receipt Date: 20201222
  Transmission Date: 20210114
  Serious: Yes (Hospitalization)
  Sender: FDA-Public Use
  Company Number: NVSC2020FR334974

PATIENT
  Age: 17 Year
  Sex: Male
  Weight: 86 kg

DRUGS (2)
  1. RIFAMPICIN [Suspect]
     Active Substance: RIFAMPIN
     Indication: STAPHYLOCOCCAL INFECTION
     Dosage: 1200 MG, QD
     Route: 048
     Dates: start: 20201020, end: 20201029
  2. BACTRIM [Suspect]
     Active Substance: SULFAMETHOXAZOLE\TRIMETHOPRIM
     Indication: STAPHYLOCOCCAL INFECTION
     Dosage: 3200 MG, QD
     Route: 048
     Dates: start: 20201020, end: 20201029

REACTIONS (4)
  - Pruritus [Recovering/Resolving]
  - Rash [Recovering/Resolving]
  - Thrombocytopenia [Recovered/Resolved]
  - Purpura [Recovering/Resolving]

NARRATIVE: CASE EVENT DATE: 20201029
